FAERS Safety Report 12413823 (Version 6)
Quarter: 2017Q1

REPORT INFORMATION
  Report Type: Report from Study
  Country: DE (occurrence: DE)
  Receive Date: 20160527
  Receipt Date: 20170329
  Transmission Date: 20170428
  Serious: Yes (Other)
  Sender: FDA-Public Use
  Company Number: DE-GILEAD-2016-0214621

PATIENT
  Age: 74 Year
  Sex: Male
  Weight: 60 kg

DRUGS (44)
  1. BENDAMUSTINE [Suspect]
     Active Substance: BENDAMUSTINE
     Dosage: 90 MG/M2, QD
     Route: 042
     Dates: start: 20140303, end: 20140303
  2. BENDAMUSTINE [Suspect]
     Active Substance: BENDAMUSTINE
     Dosage: 90 MG/M2, QD
     Route: 042
     Dates: start: 20140429
  3. BEROTEC [Concomitant]
     Active Substance: FENOTEROL HYDROBROMIDE
     Indication: ASTHMA
     Dosage: UNK
  4. CIPRO [Concomitant]
     Active Substance: CIPROFLOXACIN HYDROCHLORIDE
  5. CLARITHROMYCIN. [Concomitant]
     Active Substance: CLARITHROMYCIN
  6. ALOXI [Concomitant]
     Active Substance: PALONOSETRON HYDROCHLORIDE
  7. ROCEPHIN [Concomitant]
     Active Substance: CEFTRIAXONE SODIUM
  8. BETAISODONA [Concomitant]
     Active Substance: POVIDONE-IODINE
  9. OBINUTUZUMAB [Suspect]
     Active Substance: OBINUTUZUMAB
     Dosage: 1000 MG, QD
     Route: 042
     Dates: start: 20140303, end: 20140303
  10. BENDAMUSTINE [Suspect]
     Active Substance: BENDAMUSTINE
     Dosage: 90 MG/M2, QD
     Route: 042
     Dates: start: 20131210, end: 20131210
  11. BENDAMUSTINE [Suspect]
     Active Substance: BENDAMUSTINE
     Dosage: 90 MG/M2, QD
     Route: 042
     Dates: start: 20140203, end: 20140203
  12. BENDAMUSTINE [Suspect]
     Active Substance: BENDAMUSTINE
     Dosage: 90 MG/M2, QD
     Route: 042
     Dates: start: 20140401, end: 20140401
  13. ACICLOBETA [Concomitant]
     Dosage: UNK
     Dates: start: 20160331
  14. ICHTHOLAN [Concomitant]
  15. OBINUTUZUMAB [Suspect]
     Active Substance: OBINUTUZUMAB
     Dosage: 975 MG, QD
     Route: 042
     Dates: start: 20131210, end: 20131210
  16. BENDAMUSTINE [Suspect]
     Active Substance: BENDAMUSTINE
     Dosage: 90 MG/M2, QD
     Route: 042
     Dates: start: 20140106, end: 20140106
  17. BENDAMUSTINE [Suspect]
     Active Substance: BENDAMUSTINE
     Dosage: 90 MG/M2, QD
     Route: 042
     Dates: start: 20140304, end: 20140304
  18. BENDAMUSTINE [Suspect]
     Active Substance: BENDAMUSTINE
     Dosage: 90 MG/M2, QD
     Route: 042
     Dates: start: 20140428, end: 20140428
  19. DEXAMETHASONE. [Concomitant]
     Active Substance: DEXAMETHASONE
  20. OBINUTUZUMAB [Suspect]
     Active Substance: OBINUTUZUMAB
     Indication: CHRONIC LYMPHOCYTIC LEUKAEMIA
     Dosage: 25 MG, QD
     Route: 042
     Dates: start: 20131209, end: 20131209
  21. OBINUTUZUMAB [Suspect]
     Active Substance: OBINUTUZUMAB
     Dosage: 1000 MG, QD
     Route: 042
     Dates: start: 20131216, end: 20131216
  22. OBINUTUZUMAB [Suspect]
     Active Substance: OBINUTUZUMAB
     Dosage: 1000 MG, QD
     Route: 042
     Dates: start: 20140203, end: 20140203
  23. OBINUTUZUMAB [Suspect]
     Active Substance: OBINUTUZUMAB
     Dosage: 1000 MG, QD
     Route: 042
     Dates: start: 20140331, end: 20140331
  24. BENDAMUSTINE [Suspect]
     Active Substance: BENDAMUSTINE
     Indication: CHRONIC LYMPHOCYTIC LEUKAEMIA
     Dosage: 90 MG/M2, QD
     Route: 042
     Dates: start: 20131209, end: 20131209
  25. SPIRIVA [Concomitant]
     Active Substance: TIOTROPIUM BROMIDE MONOHYDRATE
     Indication: ASTHMA
     Dosage: UNK
     Dates: start: 20160331
  26. BUDESONIDE. [Concomitant]
     Active Substance: BUDESONIDE
  27. CEPHORAL [Concomitant]
  28. OBINUTUZUMAB [Suspect]
     Active Substance: OBINUTUZUMAB
     Dosage: 1000 MG, QD
     Route: 042
     Dates: start: 20131223, end: 20131223
  29. OBINUTUZUMAB [Suspect]
     Active Substance: OBINUTUZUMAB
     Dosage: 1000 MG, QD
     Route: 042
     Dates: start: 20131209
  30. BENDAMUSTINE [Suspect]
     Active Substance: BENDAMUSTINE
     Dosage: 90 MG/M2, QD
     Route: 042
     Dates: start: 20140331, end: 20140331
  31. TAVEGIL                            /00137201/ [Concomitant]
     Active Substance: CLEMASTINE FUMARATE
     Dosage: UNK
     Dates: start: 20160331
  32. FORTECORTIN                        /00016001/ [Concomitant]
     Active Substance: DEXAMETHASONE
     Dosage: UNK
     Dates: start: 20160331
  33. FORMOTEROL [Concomitant]
     Active Substance: FORMOTEROL
     Indication: ASTHMA
     Dosage: UNK
     Dates: start: 20160331
  34. MABTHERA [Suspect]
     Active Substance: RITUXIMAB
     Indication: CHRONIC LYMPHOCYTIC LEUKAEMIA
     Dosage: 638 MG, QD
     Route: 042
     Dates: start: 20160331, end: 20160517
  35. OBINUTUZUMAB [Suspect]
     Active Substance: OBINUTUZUMAB
     Dosage: 1000 MG, QD
     Route: 042
     Dates: start: 20140106, end: 20140106
  36. OBINUTUZUMAB [Suspect]
     Active Substance: OBINUTUZUMAB
     Dosage: 1000 MG, QD
     Route: 042
     Dates: start: 20140428, end: 20140428
  37. IDELALISIB [Suspect]
     Active Substance: IDELALISIB
     Indication: CHRONIC LYMPHOCYTIC LEUKAEMIA
     Dosage: 300 MG, QD
     Route: 048
     Dates: start: 20160331, end: 20160629
  38. BENDAMUSTINE [Suspect]
     Active Substance: BENDAMUSTINE
     Dosage: 90 MG/M2, QD
     Route: 042
     Dates: start: 20140107, end: 20140107
  39. BENDAMUSTINE [Suspect]
     Active Substance: BENDAMUSTINE
     Dosage: 90 MG/M2, QD
     Route: 042
     Dates: start: 20140204, end: 20140204
  40. COTRIM [Concomitant]
     Active Substance: SULFAMETHOXAZOLE\TRIMETHOPRIM
     Dosage: UNK
     Dates: start: 20160331
  41. CYCLOCAPS [Concomitant]
     Indication: ASTHMA
     Dosage: UNK
     Dates: start: 20160331
  42. PALONOSETRON [Concomitant]
     Active Substance: PALONOSETRON
  43. PARACETAMOL [Concomitant]
     Active Substance: ACETAMINOPHEN
  44. CEPHALEXIN                         /00145501/ [Concomitant]
     Active Substance: CEPHALEXIN

REACTIONS (1)
  - Hepatitis B [Unknown]

NARRATIVE: CASE EVENT DATE: 20160509
